FAERS Safety Report 10094230 (Version 16)
Quarter: 2015Q3

REPORT INFORMATION
  Report Type: Report from Study
  Country: ES (occurrence: ES)
  Receive Date: 20140422
  Receipt Date: 20150909
  Transmission Date: 20151125
  Serious: Yes (Death, Hospitalization)
  Sender: FDA-Public Use
  Company Number: ES-ROCHE-1384392

PATIENT
  Age: 75 Year
  Sex: Female
  Weight: 50 kg

DRUGS (17)
  1. OMEPRAZOL [Concomitant]
     Active Substance: OMEPRAZOLE
     Indication: PROPHYLAXIS
  2. LORAZEPAM. [Concomitant]
     Active Substance: LORAZEPAM
     Indication: DEPRESSION
     Route: 065
     Dates: start: 20131218
  3. METAMIZOL [Concomitant]
     Active Substance: METAMIZOLE SODIUM
     Indication: ABDOMINAL PAIN
     Route: 065
     Dates: start: 20140313
  4. FOSFOMICINA [Concomitant]
     Indication: URINARY TRACT INFECTION
     Route: 065
     Dates: start: 20140510, end: 20140510
  5. TRASTUZUMAB EMTANSINE [Suspect]
     Active Substance: ADO-TRASTUZUMAB EMTANSINE
     Indication: METASTATIC GASTRIC CANCER
  6. PARACETAMOL [Concomitant]
     Active Substance: ACETAMINOPHEN
     Indication: ABDOMINAL PAIN
     Route: 065
     Dates: start: 20140226
  7. LERCANIDIPINE [Concomitant]
     Active Substance: LERCANIDIPINE
     Indication: HYPERTENSION
  8. VENLAFAXINE [Concomitant]
     Active Substance: VENLAFAXINE HYDROCHLORIDE
     Indication: DEPRESSION
  9. PRIMPERAN [Concomitant]
     Active Substance: METOCLOPRAMIDE HYDROCHLORIDE
     Indication: NAUSEA
     Route: 065
     Dates: start: 20140319
  10. DISTRANEURINE [Concomitant]
     Active Substance: CLOMETHIAZOLE
     Indication: DEPRESSION
  11. CLOMETIAZOL [Concomitant]
     Indication: INSOMNIA
     Route: 065
     Dates: start: 20140321
  12. VALSARTAN. [Concomitant]
     Active Substance: VALSARTAN
     Indication: HYPERTENSION
  13. MOXIFLOXACINO [Concomitant]
     Indication: RESPIRATORY TRACT INFECTION
     Route: 065
     Dates: start: 20140321, end: 20140326
  14. LEXATIN (SPAIN) [Concomitant]
     Indication: DEPRESSION
  15. ESOMEPRAZOL [Concomitant]
     Active Substance: ESOMEPRAZOLE
     Indication: PROPHYLAXIS
     Route: 065
     Dates: start: 20140319, end: 20140416
  16. PACKED RBC [Concomitant]
     Indication: ANAEMIA
     Route: 065
     Dates: start: 20140319, end: 20140319
  17. TRASTUZUMAB EMTANSINE [Suspect]
     Active Substance: ADO-TRASTUZUMAB EMTANSINE
     Indication: HER-2 POSITIVE GASTRIC CANCER
     Dosage: LAST DOSE PRIOR TO GI HEMORRHAGE: 09/APR/2014 (124MG).?LAST DOSE PRIOR TO VOMITING BLOOD: 21/MAY/201
     Route: 042
     Dates: start: 20131211

REACTIONS (4)
  - Gastrointestinal haemorrhage [Recovered/Resolved]
  - Haematemesis [Recovering/Resolving]
  - Upper gastrointestinal haemorrhage [Recovered/Resolved]
  - Upper gastrointestinal haemorrhage [Fatal]

NARRATIVE: CASE EVENT DATE: 20140413
